FAERS Safety Report 9589989 (Version 1)
Quarter: 2013Q4

REPORT INFORMATION
  Report Type: Spontaneous
  Country: US (occurrence: US)
  Receive Date: 20131003
  Receipt Date: 20131003
  Transmission Date: 20140711
  Serious: No
  Sender: FDA-Public Use
  Company Number: US-AMGEN-USASP2012073640

PATIENT
  Sex: Female
  Weight: 81.63 kg

DRUGS (8)
  1. ENBREL [Suspect]
     Indication: RHEUMATOID ARTHRITIS
     Dosage: 50 MG, QWK
     Route: 058
  2. RESTASIS [Concomitant]
     Dosage: 0.05 %, UNK
  3. PREMARIN [Concomitant]
     Dosage: 0.625 MG, UNK
  4. DIOVAN [Concomitant]
     Dosage: 160 MG, UNK
  5. SIMVASTATIN [Concomitant]
     Dosage: 10 MG, UNK
  6. TOPROL [Concomitant]
     Dosage: 100 MG, UNK
  7. ACYCLOVIR                          /00587301/ [Concomitant]
     Dosage: 200/5ML
  8. LOTEMAX [Concomitant]
     Dosage: 0.5 %, UNK

REACTIONS (3)
  - Wheezing [Unknown]
  - Sinusitis [Unknown]
  - Bronchitis [Unknown]
